FAERS Safety Report 9212091 (Version 1)
Quarter: 2013Q2

REPORT INFORMATION
  Report Type: Spontaneous
  Country: US (occurrence: US)
  Receive Date: 20130404
  Receipt Date: 20130404
  Transmission Date: 20140414
  Serious: No
  Sender: FDA-Public Use
  Company Number: US-AMGEN-USASP2013017848

PATIENT
  Age: 42 Year
  Sex: Male

DRUGS (1)
  1. ENBREL [Suspect]
     Indication: PSORIASIS
     Dosage: 50 MG, WEEKLY
     Dates: start: 20040101

REACTIONS (4)
  - Hordeolum [Not Recovered/Not Resolved]
  - Malaise [Recovered/Resolved]
  - Psoriasis [Recovered/Resolved]
  - Tooth infection [Not Recovered/Not Resolved]
